FAERS Safety Report 4776851-0 (Version None)
Quarter: 2005Q3

REPORT INFORMATION
  Report Type: 
  Country: None (occurrence: None)
  Receive Date: 20050914
  Receipt Date: 20040907
  Transmission Date: 20060218
  Serious: Yes (Death, Hospitalization)
  Sender: FDA-Public Use
  Company Number: 163-20785-04090193

PATIENT
  Age: 86 Year
  Sex: Male

DRUGS (2)
  1. THALOMID [Suspect]
     Indication: PYODERMA GANGRENOSUM
     Dosage: 50 MG, BID, ORAL
     Route: 048
     Dates: start: 20040730, end: 20040901
  2. THALOMID [Suspect]

REACTIONS (7)
  - ARRHYTHMIA [None]
  - CARDIAC PACEMAKER INSERTION [None]
  - DEATH [None]
  - FALL [None]
  - HIP FRACTURE [None]
  - RENAL FAILURE [None]
  - SEPSIS [None]
